FAERS Safety Report 6218490-0 (Version None)
Quarter: 2009Q2

REPORT INFORMATION
  Report Type: 
  Country: None (occurrence: None)
  Receive Date: 20090608
  Receipt Date: 20090605
  Transmission Date: 20091009
  Serious: Yes (Other)
  Sender: FDA-Public Use
  Company Number: B0577590A

PATIENT
  Age: 62 Year
  Sex: Male
  Weight: 105 kg

DRUGS (5)
  1. ARIXTRA [Suspect]
     Indication: THROMBOSIS PROPHYLAXIS
     Dosage: 2.5MG SEE DOSAGE TEXT
     Route: 058
     Dates: start: 20071024, end: 20071031
  2. SKENAN [Concomitant]
     Indication: PAIN
     Route: 048
     Dates: start: 20071025, end: 20071105
  3. DOLIPRANE [Concomitant]
     Indication: PAIN
     Route: 048
     Dates: start: 20071025, end: 20071105
  4. SEVREDOL [Concomitant]
     Indication: PAIN
     Dosage: 20MG UNKNOWN
     Route: 048
     Dates: start: 20071025, end: 20071105
  5. LOVENOX [Concomitant]
     Indication: THROMBOSIS PROPHYLAXIS
     Dosage: .4ML UNKNOWN
     Route: 065
     Dates: start: 20071031

REACTIONS (5)
  - HAEMATOCRIT DECREASED [None]
  - HAEMOGLOBIN DECREASED [None]
  - HAEMORRHAGE [None]
  - PHLEBITIS [None]
  - RED BLOOD CELL COUNT DECREASED [None]
